FAERS Safety Report 8263380-5 (Version None)
Quarter: 2012Q2

REPORT INFORMATION
  Report Type: 
  Country: None (occurrence: None)
  Receive Date: 20120405
  Receipt Date: 20120328
  Transmission Date: 20120825
  Serious: Yes (Death, Life-Threatening, Hospitalization)
  Sender: FDA-Public Use
  Company Number: GB-MILLENNIUM PHARMACEUTICALS, INC.-2012-02238

PATIENT

DRUGS (8)
  1. DEXAMETHASONE [Concomitant]
     Indication: MULTIPLE MYELOMA
     Dosage: 160 MG, MONTHLY
     Route: 048
     Dates: start: 20110607, end: 20110617
  2. NITROGLYCERIN [Concomitant]
     Indication: CHEST PAIN
     Dosage: UNK
     Dates: end: 20110624
  3. VELCADE [Suspect]
     Dosage: 2.6 MG, 2/WEEK
     Route: 042
     Dates: start: 20110607, end: 20110617
  4. VELCADE [Suspect]
     Indication: MULTIPLE MYELOMA
     Dosage: 2.6 MG, 2/WEEK
     Route: 042
     Dates: start: 20110329, end: 20110405
  5. GABAPENTIN [Concomitant]
     Indication: NEUROPATHY PERIPHERAL
     Dosage: UNK
     Dates: end: 20110624
  6. ASPIRIN [Concomitant]
     Indication: PROPHYLAXIS
     Dosage: UNK
     Dates: start: 20110619, end: 20110624
  7. TRAMADOL HCL [Concomitant]
     Indication: POST HERPETIC NEURALGIA
     Dosage: UNK
     Dates: end: 20110624
  8. SENNA                              /00142201/ [Concomitant]
     Indication: CONSTIPATION
     Dosage: 15 MG, UNK
     Route: 048
     Dates: end: 20110624

REACTIONS (3)
  - RESPIRATORY ARREST [None]
  - PULMONARY EMBOLISM [None]
  - LOWER RESPIRATORY TRACT INFECTION [None]
